FAERS Safety Report 18170594 (Version 3)
Quarter: 2020Q3

REPORT INFORMATION
  Report Type: Spontaneous
  Country: ES (occurrence: ES)
  Receive Date: 20200819
  Receipt Date: 20200911
  Transmission Date: 20201103
  Serious: Yes (Hospitalization, Other)
  Sender: FDA-Public Use
  Company Number: ES-AMNEAL PHARMACEUTICALS-2020-AMRX-02485

PATIENT
  Sex: Male

DRUGS (1)
  1. ALBENZA [Suspect]
     Active Substance: ALBENDAZOLE
     Indication: NEUROCYSTICERCOSIS
     Dosage: UNK
     Route: 065

REACTIONS (15)
  - Insomnia [Unknown]
  - Immunosuppression [Unknown]
  - Ill-defined disorder [Unknown]
  - Weight decreased [Unknown]
  - Depression [Unknown]
  - Headache [Unknown]
  - Prescription drug used without a prescription [Unknown]
  - Fatigue [Unknown]
  - Feeling of despair [Unknown]
  - Asthenia [Unknown]
  - Blindness unilateral [Unknown]
  - Confusional state [Unknown]
  - Psychotic disorder [Unknown]
  - Seizure [Unknown]
  - Muscular weakness [Unknown]
